FAERS Safety Report 7222218-5 (Version None)
Quarter: 2011Q1

REPORT INFORMATION
  Report Type: 
  Country: None (occurrence: None)
  Receive Date: 20110112
  Receipt Date: 20110106
  Transmission Date: 20110831
  Serious: No
  Sender: FDA-Public Use
  Company Number: FR-PFIZER INC-2010160461

PATIENT
  Age: 30 Year
  Sex: Female
  Weight: 70 kg

DRUGS (2)
  1. CHAMPIX [Suspect]
     Indication: SMOKING CESSATION THERAPY
     Dosage: 0.5 MG, 2X/DAY
     Route: 048
     Dates: start: 20101116
  2. PROVAMES [Concomitant]
     Indication: TRANSGENDER HORMONAL THERAPY
     Dosage: 2 MG, DAILY

REACTIONS (1)
  - URETHRAL ULCER [None]
